FAERS Safety Report 8223338-9 (Version None)
Quarter: 2012Q1

REPORT INFORMATION
  Report Type: 
  Country: None (occurrence: None)
  Receive Date: 20120314
  Receipt Date: 20120305
  Transmission Date: 20120608
  Serious: Yes (Other)
  Sender: FDA-Public Use
  Company Number: 2011SP018003

PATIENT
  Age: 43 Year
  Sex: Male
  Weight: 85 kg

DRUGS (5)
  1. PEGINTERFERON ALFA-2B [Suspect]
     Indication: HEPATITIS C
     Dosage: 150 MG;;SC, SC
     Route: 058
     Dates: start: 20111101, end: 20120301
  2. PEGINTERFERON ALFA-2B [Suspect]
     Indication: HEPATITIS C
     Dosage: 150 MG;;SC, SC
     Route: 058
     Dates: start: 20100401, end: 20110301
  3. VICTRELIS [Suspect]
     Indication: HEPATITIS C
     Dosage: 200 MG;;PO
     Route: 048
     Dates: start: 20111101, end: 20120301
  4. RIBAVIRIN [Suspect]
     Indication: HEPATITIS C
     Dosage: 1200 MG;QD;PO
     Route: 048
     Dates: start: 20111101, end: 20120301
  5. RIBAVIRIN [Suspect]
     Indication: HEPATITIS C
     Dosage: 1200 MG;QD;PO
     Route: 048
     Dates: start: 20100401, end: 20110301

REACTIONS (2)
  - PRODUCT QUALITY ISSUE [None]
  - HEPATIC CIRRHOSIS [None]
